FAERS Safety Report 9219028 (Version 2)
Quarter: 2013Q2

REPORT INFORMATION
  Report Type: Report from Study
  Country: FR (occurrence: FR)
  Receive Date: 20130409
  Receipt Date: 20130430
  Transmission Date: 20140414
  Serious: Yes (Other)
  Sender: FDA-Public Use
  Company Number: PHHY2013FR033719

PATIENT
  Age: 15 Year
  Sex: Male
  Weight: 63 kg

DRUGS (3)
  1. ACZ885 [Suspect]
     Indication: MUCKLE-WELLS SYNDROME
     Dosage: 116 MG, EVERY 8 WEEKS
     Route: 058
     Dates: start: 20100812
  2. ACZ885 [Suspect]
     Dosage: 116 MG, EVERY 8 WEEKS
     Dates: start: 20130221
  3. PNEUMO 23 [Suspect]
     Indication: IMMUNISATION
     Dosage: UNK
     Dates: start: 20130111

REACTIONS (9)
  - Injection site reaction [Recovered/Resolved]
  - Injection site induration [Unknown]
  - Injection site erythema [Unknown]
  - Abscess [Unknown]
  - Pyrexia [Unknown]
  - Pain [Unknown]
  - Local swelling [Unknown]
  - Nausea [Unknown]
  - Headache [Unknown]
